FAERS Safety Report 8268829-X (Version None)
Quarter: 2012Q2

REPORT INFORMATION
  Report Type: 
  Country: None (occurrence: None)
  Receive Date: 20120409
  Receipt Date: 20120409
  Transmission Date: 20120825
  Serious: Yes (Other)
  Sender: FDA-Public Use
  Company Number: None

PATIENT
  Age: 54 Year
  Sex: Female
  Weight: 62.595 kg

DRUGS (1)
  1. ALDARA [Suspect]
     Indication: SKIN LESION
     Dosage: APPLY THIN LAYER
     Route: 061
     Dates: start: 20110701, end: 20110710

REACTIONS (2)
  - ERYTHEMA [None]
  - PNEUMONITIS [None]
